FAERS Safety Report 24550201 (Version 4)
Quarter: 2025Q1

REPORT INFORMATION
  Report Type: Spontaneous
  Country: US (occurrence: US)
  Receive Date: 20241025
  Receipt Date: 20250118
  Transmission Date: 20250409
  Serious: Yes (Death, Hospitalization)
  Sender: TRAVERE THERAPEUTICS
  Company Number: US-TRAVERE-2024TVT01068

PATIENT
  Age: 34 Year
  Sex: Female

DRUGS (3)
  1. FILSPARI [Suspect]
     Active Substance: SPARSENTAN
     Indication: IgA nephropathy
     Dosage: DAYS 1-14
     Route: 048
     Dates: start: 20240612
  2. FILSPARI [Suspect]
     Active Substance: SPARSENTAN
     Indication: Haematuria
     Route: 048
     Dates: start: 20240712
  3. FILSPARI [Suspect]
     Active Substance: SPARSENTAN
     Route: 048
     Dates: start: 20240820

REACTIONS (2)
  - Cerebrovascular accident [Fatal]
  - Cerebral haemorrhage [Unknown]

NARRATIVE: CASE EVENT DATE: 20240801
